FAERS Safety Report 7889939-2 (Version None)
Quarter: 2011Q4

REPORT INFORMATION
  Report Type: 
  Country: None (occurrence: None)
  Receive Date: 20111103
  Receipt Date: 20111025
  Transmission Date: 20120403
  Serious: Yes (Other)
  Sender: FDA-Public Use
  Company Number: IN-ABBOTT-11P-078-0868377-00

PATIENT
  Age: 32 Year
  Sex: Female

DRUGS (18)
  1. MYCOPHENOLATE MOFETIL [Concomitant]
     Indication: PRODUCT USED FOR UNKNOWN INDICATION
  2. PREDNISOLONE [Concomitant]
     Indication: IMMUNOSUPPRESSION
  3. AZATHIOPRINE [Concomitant]
     Indication: IMMUNOSUPPRESSION
  4. ANTIBIOTICS [Concomitant]
     Indication: PRODUCT USED FOR UNKNOWN INDICATION
  5. BASILIXIMAB [Interacting]
     Indication: PRODUCT USED FOR UNKNOWN INDICATION
     Dosage: 20 MG DAY 1 AND 4 OF TRANSPLANT
  6. PREDNISOLONE [Concomitant]
     Dosage: 30 MG DAILY
  7. NEUPOGEN [Concomitant]
     Indication: PRODUCT USED FOR UNKNOWN INDICATION
  8. CYCLOSPORINE [Suspect]
     Indication: IMMUNOSUPPRESSION
  9. CYCLOSPORINE [Interacting]
  10. BLOOD AND RELATED PRODUCTS [Concomitant]
     Indication: PRODUCT USED FOR UNKNOWN INDICATION
  11. NIFEDIPINE [Concomitant]
     Indication: HYPERTENSION
  12. CYCLOSPORINE [Interacting]
  13. PREDNISOLONE [Concomitant]
     Dosage: 40 MG DAILY
  14. SIROLIMUS [Concomitant]
     Indication: PRODUCT USED FOR UNKNOWN INDICATION
  15. CYCLOSPORINE [Interacting]
  16. PREDNISOLONE [Concomitant]
     Dosage: 7.5 MG DAILY
  17. CLONIDINE [Concomitant]
     Indication: HYPERTENSION
  18. ATENOLOL [Concomitant]
     Indication: HYPERTENSION

REACTIONS (3)
  - DRUG INTERACTION [None]
  - RENAL CORTICAL NECROSIS [None]
  - IMMUNOSUPPRESSANT DRUG LEVEL INCREASED [None]
